FAERS Safety Report 7277089-8 (Version None)
Quarter: 2011Q1

REPORT INFORMATION
  Report Type: 
  Country: None (occurrence: None)
  Receive Date: 20110207
  Receipt Date: 20110131
  Transmission Date: 20110831
  Serious: No
  Sender: FDA-Public Use
  Company Number: GB-PFIZER INC-2010154136

PATIENT

DRUGS (1)
  1. LUSTRAL [Suspect]

REACTIONS (1)
  - NO ADVERSE EVENT [None]
